FAERS Safety Report 6122289-3 (Version None)
Quarter: 2009Q1

REPORT INFORMATION
  Report Type: 
  Country: None (occurrence: None)
  Receive Date: 20090316
  Receipt Date: 20090302
  Transmission Date: 20090719
  Serious: Yes (Life-Threatening, Hospitalization)
  Sender: FDA-Public Use
  Company Number: ADE2009-0470

PATIENT
  Age: 44 Year
  Sex: Female

DRUGS (16)
  1. CITALOPRAM HYDROBROMIDE [Suspect]
     Indication: DEPRESSION
  2. DEXAMETHASONE TAB [Suspect]
  3. METHYLENE BLUE 500 MG IN 500ML [Suspect]
     Route: 042
  4. MORPHINE [Suspect]
  5. PROPOFOL [Suspect]
  6. REMIFENTANIL [Suspect]
  7. ROCURONIUM BROMIDE [Suspect]
  8. ALFENTANIL [Suspect]
  9. ASPIRIN [Concomitant]
  10. ATENOLOL [Concomitant]
  11. BENDROFLUMETHIAZIDE [Concomitant]
  12. FELODIPINE [Concomitant]
  13. ISOSORBIDE MONONITRATE [Concomitant]
  14. SIMVASTATIN [Concomitant]
  15. . [Concomitant]
  16. . [Concomitant]

REACTIONS (10)
  - AKATHISIA [None]
  - BLOOD CALCIUM INCREASED [None]
  - BLOOD PHOSPHORUS INCREASED [None]
  - C-REACTIVE PROTEIN INCREASED [None]
  - DRUG INTERACTION [None]
  - DRUG TOXICITY [None]
  - INFLAMMATION [None]
  - POST PROCEDURAL COMPLICATION [None]
  - SEROTONIN SYNDROME [None]
  - WHITE BLOOD CELL COUNT INCREASED [None]
